FAERS Safety Report 12779995 (Version 1)
Quarter: 2016Q3

REPORT INFORMATION
  Report Type: Spontaneous
  Country: US (occurrence: US)
  Receive Date: 20160925
  Receipt Date: 20160925
  Transmission Date: 20161109
  Serious: No
  Sender: FDA-Public Use
  Company Number: None

PATIENT
  Age: 52 Year
  Sex: Female
  Weight: 117 kg

DRUGS (8)
  1. ANASTROZOL [Suspect]
     Active Substance: ANASTROZOLE
     Indication: BREAST CANCER
     Dosage: 1 TABLET DAILY ORAL
     Route: 048
     Dates: end: 20160809
  2. CALCIUM [Concomitant]
     Active Substance: CALCIUM
  3. AMBIEN [Concomitant]
     Active Substance: ZOLPIDEM TARTRATE
  4. OMEPRAZOLE. [Concomitant]
     Active Substance: OMEPRAZOLE
  5. WELLBUTRIN METOPROLOL [Concomitant]
  6. LEXAPRO [Concomitant]
     Active Substance: ESCITALOPRAM OXALATE
  7. MULTIPLE VITAMIN [Concomitant]
     Active Substance: VITAMINS
  8. MELATONIN [Concomitant]
     Active Substance: MELATONIN

REACTIONS (6)
  - Pain [None]
  - Carpal tunnel syndrome [None]
  - Crying [None]
  - Gait disturbance [None]
  - Joint swelling [None]
  - Pain in extremity [None]
